FAERS Safety Report 17542220 (Version 8)
Quarter: 2020Q2

REPORT INFORMATION
  Report Type: Report from Study
  Country: US (occurrence: US)
  Receive Date: 20200313
  Receipt Date: 20200515
  Transmission Date: 20200713
  Serious: Yes (Other)
  Sender: FDA-Public Use
  Company Number: US-GILEAD-2020-0454758

PATIENT
  Age: 36 Year
  Sex: Female
  Weight: 164.2 kg

DRUGS (8)
  1. ORENITRAM [Suspect]
     Active Substance: TREPROSTINIL
     Dosage: 2.5 MG, BID
     Route: 048
  2. ORENITRAM [Suspect]
     Active Substance: TREPROSTINIL
     Dosage: 0.25 MG, BID
     Route: 048
     Dates: start: 20191105
  3. AMBRISENTAN [Suspect]
     Active Substance: AMBRISENTAN
     Indication: PULMONARY ARTERIAL HYPERTENSION
     Dosage: 10 MG, QD
     Route: 048
     Dates: start: 20190923
  4. ORENITRAM [Suspect]
     Active Substance: TREPROSTINIL
     Indication: PULMONARY ARTERIAL HYPERTENSION
     Dosage: 1.25 MG, BID
     Route: 048
     Dates: start: 20191105
  5. ORENITRAM [Suspect]
     Active Substance: TREPROSTINIL
     Dosage: UNK
     Route: 048
  6. ORENITRAM [Suspect]
     Active Substance: TREPROSTINIL
     Dosage: 0.125 MG, BID
     Route: 048
     Dates: start: 20191105
  7. ORENITRAM [Suspect]
     Active Substance: TREPROSTINIL
     Dosage: 1 MG, BID
     Route: 048
     Dates: start: 20191105
  8. AMLODIPINE [Concomitant]
     Active Substance: AMLODIPINE BESYLATE

REACTIONS (24)
  - Loss of consciousness [Unknown]
  - Oxygen saturation decreased [Unknown]
  - Peripheral swelling [Not Recovered/Not Resolved]
  - Weight increased [Not Recovered/Not Resolved]
  - Platelet count decreased [Unknown]
  - Dyspnoea exertional [Not Recovered/Not Resolved]
  - Weight fluctuation [Unknown]
  - Feeling hot [Not Recovered/Not Resolved]
  - Dizziness [Unknown]
  - Increased tendency to bruise [Not Recovered/Not Resolved]
  - Heart rate increased [Unknown]
  - Vertigo [Not Recovered/Not Resolved]
  - Syncope [Unknown]
  - Headache [Unknown]
  - Swelling face [Not Recovered/Not Resolved]
  - Migraine [Unknown]
  - Vomiting [Unknown]
  - Mouth haemorrhage [Unknown]
  - Feeling abnormal [Unknown]
  - Asthenia [Unknown]
  - Dyspnoea [Not Recovered/Not Resolved]
  - Oedema peripheral [Unknown]
  - Nausea [Unknown]
  - Palpitations [Unknown]

NARRATIVE: CASE EVENT DATE: 202001
